FAERS Safety Report 9395737 (Version 4)
Quarter: 2013Q3

REPORT INFORMATION
  Report Type: Spontaneous
  Country: BE (occurrence: BE)
  Receive Date: 20130711
  Receipt Date: 20130920
  Transmission Date: 20140515
  Serious: Yes (Hospitalization, Other)
  Sender: FDA-Public Use
  Company Number: BE-PFIZER INC-2013200713

PATIENT
  Age: 62 Year
  Sex: Male

DRUGS (1)
  1. VERVENTI [Suspect]
     Indication: ERECTILE DYSFUNCTION
     Dosage: 50 MG, UNK
     Route: 048
     Dates: start: 20130626, end: 20130626

REACTIONS (1)
  - Renal disorder [Recovered/Resolved]
